FAERS Safety Report 13442027 (Version 1)
Quarter: 2017Q2

REPORT INFORMATION
  Report Type: Other
  Country: US (occurrence: US)
  Receive Date: 20170413
  Receipt Date: 20170413
  Transmission Date: 20170830
  Serious: Yes (Hospitalization)
  Sender: FDA-Public Use
  Company Number: US-ACTELION-A-CH2017-151981

PATIENT
  Age: 36 Year
  Sex: Female

DRUGS (8)
  1. EPOPROSTENOL SODIUM. [Suspect]
     Active Substance: EPOPROSTENOL SODIUM
     Indication: PULMONARY ARTERIAL HYPERTENSION
     Dosage: 15 NG/KG, PER MIN
     Route: 042
  2. EPOPROSTENOL SODIUM. [Suspect]
     Active Substance: EPOPROSTENOL SODIUM
     Dosage: 2 NG/KG, PER MIN
     Route: 042
  3. SILDENAFIL. [Concomitant]
     Active Substance: SILDENAFIL
     Indication: PULMONARY ARTERIAL HYPERTENSION
     Dosage: 20 MG, TID
     Route: 048
  4. FUROSEMIDE. [Concomitant]
     Active Substance: FUROSEMIDE
     Indication: POLYURIA
  5. DOPAMINE [Concomitant]
     Active Substance: DOPAMINE\DOPAMINE HYDROCHLORIDE
     Indication: POLYURIA
  6. COUMADIN [Concomitant]
     Active Substance: WARFARIN SODIUM
     Indication: COAGULOPATHY
  7. HEPARIN [Concomitant]
     Active Substance: HEPARIN SODIUM
     Indication: COAGULOPATHY
     Dosage: 5000 U, UNK
     Route: 058
  8. WARFARIN [Concomitant]
     Active Substance: WARFARIN

REACTIONS (8)
  - Wound haematoma [Recovered/Resolved]
  - Incision site complication [Recovered/Resolved]
  - Premature baby [Unknown]
  - Bloody discharge [Recovered/Resolved]
  - Wound secretion [Recovered/Resolved]
  - Female sterilisation [Unknown]
  - Caesarean section [Unknown]
  - Exposure during pregnancy [Unknown]
